FAERS Safety Report 24274458 (Version 1)
Quarter: 2024Q3

REPORT INFORMATION
  Report Type: Spontaneous
  Country: FR (occurrence: FR)
  Receive Date: 20240902
  Receipt Date: 20240902
  Transmission Date: 20241016
  Serious: Yes (Life-Threatening)
  Sender: NOVARTIS
  Company Number: None

PATIENT
  Age: 53 Year
  Sex: Male
  Weight: 60 kg

DRUGS (3)
  1. TEGRETOL [Suspect]
     Active Substance: CARBAMAZEPINE
     Indication: Poisoning deliberate
     Dosage: 11.2 G, ONCE/SINGLE
     Route: 048
     Dates: start: 20240804, end: 20240804
  2. BRIVIACT [Suspect]
     Active Substance: BRIVARACETAM
     Indication: Poisoning deliberate
     Dosage: 2.1 G, ONCE/SINGLE
     Route: 048
     Dates: start: 20240804, end: 20240804
  3. CAFFEINE\PHENOBARBITAL [Suspect]
     Active Substance: CAFFEINE\PHENOBARBITAL
     Indication: Poisoning deliberate
     Dosage: 1.05 G, ONCE/SINGLE
     Route: 048
     Dates: start: 20240804, end: 20240804

REACTIONS (7)
  - Altered state of consciousness [Recovered/Resolved]
  - Hypoxia [Recovered/Resolved]
  - Epilepsy [Recovered/Resolved]
  - Musculoskeletal stiffness [Recovered/Resolved]
  - Haemodynamic instability [Recovered/Resolved]
  - Vomiting [Recovered/Resolved]
  - Agitation [Recovered/Resolved]

NARRATIVE: CASE EVENT DATE: 20240804
